FAERS Safety Report 16897311 (Version 1)
Quarter: 2019Q4

REPORT INFORMATION
  Report Type: Report from Study
  Country: None (occurrence: PT)
  Receive Date: 20191009
  Receipt Date: 20191009
  Transmission Date: 20200122
  Serious: Yes (Other)
  Sender: FDA-Public Use
  Company Number: PT-ABBVIE-19K-130-2955002-00

PATIENT
  Sex: Female

DRUGS (1)
  1. HUMIRA [Suspect]
     Active Substance: ADALIMUMAB
     Indication: RHEUMATOID ARTHRITIS
     Route: 058
     Dates: start: 20190312, end: 201907

REACTIONS (3)
  - Localised infection [Not Recovered/Not Resolved]
  - Therapeutic product effect decreased [Unknown]
  - Animal bite [Unknown]

NARRATIVE: CASE EVENT DATE: 2019
